FAERS Safety Report 20030406 (Version 1)
Quarter: 2021Q4

REPORT INFORMATION
  Report Type: Report from Study
  Country: CA (occurrence: CA)
  Receive Date: 20211103
  Receipt Date: 20211103
  Transmission Date: 20220303
  Serious: Yes (Hospitalization, Other)
  Sender: FDA-Public Use
  Company Number: CA-BAYER-2021A237778

PATIENT

DRUGS (2)
  1. EYLEA [Suspect]
     Active Substance: AFLIBERCEPT
     Indication: Diabetic retinal oedema
     Dosage: UNKNOWN TOTAL NUMBER OF DOSES OF EYLEA
     Route: 031
     Dates: start: 20210401
  2. EYLEA [Suspect]
     Active Substance: AFLIBERCEPT
     Dosage: IN THE RIGHT EYE
     Route: 031
     Dates: start: 20211020

REACTIONS (2)
  - Eye infection [Not Recovered/Not Resolved]
  - Groin abscess [Unknown]
